FAERS Safety Report 4554763-5 (Version None)
Quarter: 2005Q1

REPORT INFORMATION
  Report Type: 
  Country: None (occurrence: None)
  Receive Date: 20050118
  Receipt Date: 20041103
  Transmission Date: 20050727
  Serious: Yes (Hospitalization)
  Sender: FDA-Public Use
  Company Number: FR-GLAXOSMITHKLINE-B0350453A

PATIENT
  Age: 17 Month
  Sex: Male
  Weight: 10.8 kg

DRUGS (1)
  1. NARAMIG [Suspect]
     Dosage: 2.5MG SINGLE DOSE
     Route: 048
     Dates: start: 20041103, end: 20041103

REACTIONS (2)
  - ACCIDENTAL OVERDOSE [None]
  - NO ADVERSE DRUG EFFECT [None]
